FAERS Safety Report 9928698 (Version 2)
Quarter: 2014Q1

REPORT INFORMATION
  Report Type: Spontaneous
  Country: EC (occurrence: EC)
  Receive Date: 20140227
  Receipt Date: 20140302
  Transmission Date: 20141002
  Serious: No
  Sender: FDA-Public Use
  Company Number: EC-009507513-1402ECU012672

PATIENT
  Sex: Female

DRUGS (1)
  1. IMPLANON NXT [Suspect]
     Indication: CONTRACEPTION
     Dosage: 60-70 MICROGRAM/DAY, TRIENIAL
     Route: 059

REACTIONS (1)
  - Polycystic ovaries [Unknown]
